FAERS Safety Report 8811729 (Version 1)
Quarter: 2012Q4

REPORT INFORMATION
  Report Type: Spontaneous
  Country: US (occurrence: None)
  Receive Date: 20120925
  Receipt Date: 20120925
  Transmission Date: 20130627
  Serious: Yes (Hospitalization)
  Sender: FDA-Public Use
  Company Number: None

PATIENT
  Age: 63 Year
  Sex: Female
  Weight: 55.34 kg

DRUGS (3)
  1. PROLIA [Suspect]
     Dosage: 60 mg q 6 months IM
     Route: 030
     Dates: start: 20111018, end: 20120420
  2. WELLBUTRIN [Concomitant]
  3. XANAX [Concomitant]

REACTIONS (1)
  - Squamous cell carcinoma of skin [None]
